FAERS Safety Report 8013039-4 (Version None)
Quarter: 2011Q4

REPORT INFORMATION
  Report Type: 
  Country: None (occurrence: None)
  Receive Date: 20111229
  Receipt Date: 20111215
  Transmission Date: 20120403
  Serious: Yes (Other)
  Sender: FDA-Public Use
  Company Number: MX-PFIZER INC-2011314714

PATIENT
  Age: 68 Year
  Sex: Female

DRUGS (4)
  1. RAMIPRIL [Suspect]
     Indication: HYPERTENSION
     Dosage: 5 MG, DAILY
     Route: 048
     Dates: start: 20110601
  2. ORAL ANTIDIABETICS [Concomitant]
     Dosage: UNK
     Dates: start: 20080101
  3. MICARDIS [Concomitant]
  4. CANDESARTAN CILEXETIL [Concomitant]
     Dosage: UNK
     Dates: end: 20110601

REACTIONS (1)
  - NERVE ROOT COMPRESSION [None]
